FAERS Safety Report 21206722 (Version 1)
Quarter: 2022Q3

REPORT INFORMATION
  Report Type: Report from Study
  Country: TH (occurrence: TH)
  Receive Date: 20220812
  Receipt Date: 20220812
  Transmission Date: 20221026
  Serious: Yes (Death, Hospitalization)
  Sender: FDA-Public Use
  Company Number: TH-MYLANLABS-2022M1085890

PATIENT
  Age: 3 Year
  Sex: Male
  Weight: 15 kg

DRUGS (2)
  1. EPINEPHRINE [Suspect]
     Active Substance: EPINEPHRINE
     Indication: Croup infectious
     Dosage: 0.07 MILLIGRAM/KILOGRAM, IN ERROR VIA DIFFERENT..
     Route: 042
  2. EPINEPHRINE [Concomitant]
     Active Substance: EPINEPHRINE
     Indication: Croup infectious
     Dosage: 1 MILLIGRAM, NEBULISED
     Route: 065

REACTIONS (4)
  - Cardiac arrest [Fatal]
  - Incorrect route of product administration [Fatal]
  - Accidental overdose [Fatal]
  - Metabolic acidosis [Unknown]
